FAERS Safety Report 8327928-4 (Version None)
Quarter: 2012Q2

REPORT INFORMATION
  Report Type: 
  Country: None (occurrence: None)
  Receive Date: 20120502
  Receipt Date: 20120424
  Transmission Date: 20120825
  Serious: Yes (Other)
  Sender: FDA-Public Use
  Company Number: US-BAYER-2011-104159

PATIENT
  Age: 59 Year
  Sex: Male

DRUGS (20)
  1. MAGNEVIST [Suspect]
  2. GADOLINIUM IN UNSPECIFIED DRUG [Suspect]
     Indication: ANGIOGRAM PERIPHERAL
     Dosage: UNK
     Dates: start: 20031024, end: 20031024
  3. VERAPAMIL [Concomitant]
  4. LASIX [Concomitant]
  5. ALBUTEROL [Concomitant]
  6. IRON SULFATETHIAMIN COMPOUND TAB [Concomitant]
  7. RENAGEL [Concomitant]
  8. LANOXIN [Concomitant]
  9. OPTIMARK [Suspect]
  10. MINOXIDIL [Concomitant]
  11. FLOVENT [Concomitant]
  12. COUMADIN [Concomitant]
     Indication: ATRIAL FIBRILLATION
  13. INSULIN [Concomitant]
  14. OMNISCAN [Suspect]
  15. CLONIDINE [Concomitant]
  16. CALCITRIOL [Concomitant]
  17. SENSIPAR [Concomitant]
  18. GADOLINIUM IN UNSPECIFIED DRUG [Suspect]
     Indication: ANGIOGRAM
     Dosage: UNK
     Dates: start: 20030717, end: 20030717
  19. GLYBURIDE [Concomitant]
  20. EPOGEN [Concomitant]

REACTIONS (20)
  - NEPHROGENIC SYSTEMIC FIBROSIS [None]
  - MUSCULAR WEAKNESS [None]
  - CONDITION AGGRAVATED [None]
  - HAEMODIALYSIS [None]
  - CARDIAC VALVE DISEASE [None]
  - POST THROMBOTIC SYNDROME [None]
  - MULTIPLE INJURIES [None]
  - RENAL FAILURE [None]
  - HEMIPARESIS [None]
  - CEREBROVASCULAR ACCIDENT [None]
  - LUMBAR RADICULOPATHY [None]
  - SKIN DISCOLOURATION [None]
  - PAIN [None]
  - PERITONEAL DIALYSIS [None]
  - INDURATION [None]
  - FIBROSIS [None]
  - CORONARY ARTERY DISEASE [None]
  - CARDIOMYOPATHY [None]
  - RIGHT VENTRICULAR DYSFUNCTION [None]
  - ATRIAL FIBRILLATION [None]
